FAERS Safety Report 5488469-5 (Version None)
Quarter: 2007Q4

REPORT INFORMATION
  Report Type: 
  Country: None (occurrence: None)
  Receive Date: 20071005
  Receipt Date: 20070619
  Transmission Date: 20080405
  Serious: No
  Sender: FDA-Public Use
  Company Number: PHEH2007US09004

PATIENT
  Age: 63 Year
  Sex: Female

DRUGS (2)
  1. TEKTURNA [Suspect]
     Indication: HYPERTENSION
     Dosage: 75 MG,QD
     Dates: start: 20070618
  2. ZITHROMAX [Suspect]
     Indication: PHARYNGOLARYNGEAL PAIN

REACTIONS (1)
  - DIARRHOEA [None]
